FAERS Safety Report 7728440-3 (Version None)
Quarter: 2011Q3

REPORT INFORMATION
  Report Type: 
  Country: None (occurrence: None)
  Receive Date: 20110905
  Receipt Date: 20110826
  Transmission Date: 20111222
  Serious: Yes (Other)
  Sender: FDA-Public Use
  Company Number: PHHY2010AU45068

PATIENT
  Sex: Female

DRUGS (3)
  1. ZOLEDRONOC ACID [Suspect]
     Dosage: UNK UKN, UNK
     Route: 042
     Dates: start: 20100316
  2. LIPITOR [Suspect]
  3. ZOLEDRONOC ACID [Suspect]
     Dosage: UNK UKN, UNK
     Route: 042
     Dates: start: 20110816

REACTIONS (11)
  - INFLUENZA LIKE ILLNESS [None]
  - SWELLING FACE [None]
  - MOUTH ULCERATION [None]
  - DYSPHAGIA [None]
  - ERYTHEMA [None]
  - EYE PRURITUS [None]
  - MYALGIA [None]
  - PAIN IN JAW [None]
  - OROPHARYNGEAL DISCOMFORT [None]
  - PAIN IN EXTREMITY [None]
  - HYPERSENSITIVITY [None]
